FAERS Safety Report 7500774-7 (Version None)
Quarter: 2011Q2

REPORT INFORMATION
  Report Type: 
  Country: None (occurrence: None)
  Receive Date: 20110524
  Receipt Date: 20110519
  Transmission Date: 20111010
  Serious: Yes (Hospitalization, Other)
  Sender: FDA-Public Use
  Company Number: PHHY2011AU37275

PATIENT
  Sex: Male
  Weight: 106 kg

DRUGS (14)
  1. OXYCODONE HCL [Suspect]
     Indication: ABDOMINAL PAIN UPPER
  2. AFINITOR [Suspect]
     Indication: HEPATIC NEOPLASM MALIGNANT
     Dosage: CODE NOT BROKEN
     Route: 048
     Dates: start: 20110330, end: 20110420
  3. PLACEBO [Suspect]
     Indication: HEPATIC NEOPLASM MALIGNANT
     Dosage: CODE NOT BROKEN
     Route: 048
     Dates: start: 20110330, end: 20110420
  4. FUROSEMIDE [Concomitant]
     Indication: ASCITES
     Dosage: 40 MG DAILY
     Route: 048
     Dates: start: 20110518
  5. PLACEBO [Suspect]
     Dosage: CODE NOT BROKEN
     Route: 048
     Dates: start: 20110421, end: 20110519
  6. SPIRONOLACTONE [Suspect]
     Indication: ASCITES
     Dosage: 50 MG DAILY
     Route: 048
     Dates: start: 20110421
  7. SPIRONOLACTONE [Suspect]
     Indication: OEDEMA PERIPHERAL
  8. MS CONTIN [Suspect]
     Indication: ARTHRALGIA
     Dosage: 10 MG, BID
     Route: 048
     Dates: start: 20110517
  9. BLINDED NO TREATMENT RECEIVED [Suspect]
     Indication: HEPATIC NEOPLASM MALIGNANT
     Dosage: CODE NOT BROKEN
     Route: 048
     Dates: start: 20110330, end: 20110420
  10. AFINITOR [Suspect]
     Dosage: CODE NOT BROKEN
     Route: 048
     Dates: start: 20110421, end: 20110519
  11. BLINDED NO TREATMENT RECEIVED [Suspect]
     Dosage: CODE NOT BROKEN
     Route: 048
     Dates: start: 20110421, end: 20110519
  12. OXYCODONE HCL [Suspect]
     Indication: ARTHRALGIA
     Dosage: 5 MG QPRN
     Route: 048
     Dates: start: 20110511
  13. MS CONTIN [Suspect]
     Indication: ABDOMINAL PAIN UPPER
  14. FUROSEMIDE [Concomitant]
     Indication: OEDEMA PERIPHERAL

REACTIONS (8)
  - CONCOMITANT DISEASE PROGRESSION [None]
  - NEOPLASM MALIGNANT [None]
  - COUGH [None]
  - PARAESTHESIA [None]
  - HYPONATRAEMIA [None]
  - JOINT SWELLING [None]
  - OEDEMA PERIPHERAL [None]
  - RASH [None]
